FAERS Safety Report 17388272 (Version 2)
Quarter: 2020Q1

REPORT INFORMATION
  Report Type: Report from Study
  Country: IT (occurrence: IT)
  Receive Date: 20200207
  Receipt Date: 20200213
  Transmission Date: 20200409
  Serious: Yes (Hospitalization, Other)
  Sender: FDA-Public Use
  Company Number: IT-MYLANLABS-2020M1002820

PATIENT
  Age: 36 Year
  Sex: Male

DRUGS (4)
  1. QUETIAPINE. [Suspect]
     Active Substance: QUETIAPINE
     Indication: MENTAL DISORDER
     Dosage: UNK
  2. LYRICA [Concomitant]
     Active Substance: PREGABALIN
     Indication: PRODUCT USED FOR UNKNOWN INDICATION
     Dosage: 450 MILLIGRAM
     Route: 048
  3. LORMETAZEPAM [Suspect]
     Active Substance: LORMETAZEPAM
     Indication: MENTAL DISORDER
     Dosage: UNK
  4. DEPAKIN [Suspect]
     Active Substance: VALPROATE SODIUM
     Indication: MENTAL DISORDER
     Dosage: UNK

REACTIONS (3)
  - Sedation [Unknown]
  - Drug abuse [Unknown]
  - Intentional product misuse [Unknown]

NARRATIVE: CASE EVENT DATE: 20190925
